FAERS Safety Report 8375140-5 (Version None)
Quarter: 2012Q2

REPORT INFORMATION
  Report Type: 
  Country: None (occurrence: None)
  Receive Date: 20120521
  Receipt Date: 20120515
  Transmission Date: 20120825
  Serious: Yes (Other)
  Sender: FDA-Public Use
  Company Number: US-AMGEN-USASP2012030011

PATIENT
  Sex: Female

DRUGS (1)
  1. EPOGEN [Suspect]
     Indication: PRODUCT USED FOR UNKNOWN INDICATION
     Dosage: 20000 IU, 3 TIMES/WK
     Dates: start: 20081031

REACTIONS (3)
  - HAEMOGLOBIN DECREASED [None]
  - BLOOD PRODUCT TRANSFUSION DEPENDENT [None]
  - THERAPEUTIC RESPONSE DECREASED [None]
